FAERS Safety Report 14410845 (Version 2)
Quarter: 2018Q1

REPORT INFORMATION
  Report Type: Spontaneous
  Country: US (occurrence: US)
  Receive Date: 20180119
  Receipt Date: 20180316
  Transmission Date: 20180509
  Serious: No
  Sender: FDA-Public Use
  Company Number: US-ASTRAZENECA-2018SE02618

PATIENT
  Sex: Female
  Weight: 88 kg

DRUGS (1)
  1. BYDUREON [Suspect]
     Active Substance: EXENATIDE
     Indication: DIABETES MELLITUS
     Route: 058
     Dates: start: 2017

REACTIONS (5)
  - Limb injury [Unknown]
  - Intentional device misuse [Unknown]
  - Anxiety [Unknown]
  - Wrong technique in product usage process [Unknown]
  - Device malfunction [Unknown]
